FAERS Safety Report 10339077 (Version 1)
Quarter: 2014Q3

REPORT INFORMATION
  Report Type: Spontaneous
  Country: JP (occurrence: None)
  Receive Date: 20140721
  Receipt Date: 20140721
  Transmission Date: 20150326
  Serious: Yes (Hospitalization)
  Sender: FDA-Public Use
  Company Number: KAD201407-000758

PATIENT
  Age: 12 Year
  Sex: Female

DRUGS (3)
  1. INTERFERON ALFACON-1 [Suspect]
     Active Substance: INTERFERON ALFACON-1
     Indication: SUBACUTE SCLEROSING PANENCEPHALITIS
     Dosage: INTRAVENTRICULAR, 300 X 10E4 IU, TWICE WEEKLY
     Route: 018
  2. ISOPRINOSINE [Suspect]
     Active Substance: INOSINE PRANOBEX
     Indication: SUBACUTE SCLEROSING PANENCEPHALITIS
     Route: 048
  3. RIBAVIRIN (RIBAVIRIN) [Suspect]
     Active Substance: RIBAVIRIN
     Indication: SUBACUTE SCLEROSING PANENCEPHALITIS
     Dosage: INTRAVENTRICULAR, 1 MG/KG/DAY FOR 5 DAYS (PER 2 WEEKS)?
     Route: 018

REACTIONS (2)
  - Off label use [None]
  - Cerebral atrophy [None]
